FAERS Safety Report 13824649 (Version 3)
Quarter: 2018Q3

REPORT INFORMATION
  Report Type: Spontaneous
  Country: RU (occurrence: RU)
  Receive Date: 20170802
  Receipt Date: 20180831
  Transmission Date: 20181010
  Serious: Yes (Hospitalization)
  Sender: FDA-Public Use
  Company Number: RU-ASTRAZENECA-2017SE77726

PATIENT
  Age: 73 Year
  Sex: Male
  Weight: 80 kg

DRUGS (7)
  1. CARDIOMAGNYL [Concomitant]
     Active Substance: ASPIRIN\MAGNESIUM HYDROXIDE
  2. CARVEDILOL. [Concomitant]
     Active Substance: CARVEDILOL
  3. GLUCOVANS [Concomitant]
  4. OMNIK [Concomitant]
  5. BRILINTA [Suspect]
     Active Substance: TICAGRELOR
     Indication: ANGINA UNSTABLE
     Route: 048
     Dates: start: 201701
  6. AMLODIPIN [Concomitant]
     Active Substance: AMLODIPINE BESYLATE
  7. BRILINTA [Suspect]
     Active Substance: TICAGRELOR
     Indication: STENT PLACEMENT
     Route: 048
     Dates: start: 201701

REACTIONS (4)
  - Haemorrhage [Recovered/Resolved]
  - Anaemia [Recovered/Resolved]
  - Cholelithiasis [Recovered/Resolved]
  - Incorrect drug administration duration [Not Recovered/Not Resolved]

NARRATIVE: CASE EVENT DATE: 20170220
